FAERS Safety Report 6671257-1 (Version None)
Quarter: 2010Q2

REPORT INFORMATION
  Report Type: 
  Country: None (occurrence: None)
  Receive Date: 20100407
  Receipt Date: 20100402
  Transmission Date: 20101027
  Serious: Yes (Death, Hospitalization, Other)
  Sender: FDA-Public Use
  Company Number: JP-ROXANE LABORATORIES, INC.-2010-RO-00368RO

PATIENT
  Age: 26 Year
  Sex: Female
  Weight: 48 kg

DRUGS (5)
  1. CYCLOPHOSPHAMIDE [Suspect]
     Indication: WEGENER'S GRANULOMATOSIS
     Dates: end: 20031001
  2. PREDNISOLONE [Suspect]
     Indication: WEGENER'S GRANULOMATOSIS
     Dosage: 60 MG
     Dates: start: 19960101
  3. PREDNISOLONE [Suspect]
     Dosage: 10 MG
     Dates: end: 20060301
  4. PREDNISOLONE [Suspect]
     Dosage: 20 MG
     Dates: start: 20060301
  5. RITUXIMAB [Suspect]
     Indication: WEGENER'S GRANULOMATOSIS
     Dates: start: 20060501

REACTIONS (13)
  - ANAEMIA [None]
  - BLADDER CANCER [None]
  - C-REACTIVE PROTEIN INCREASED [None]
  - CYSTITIS HAEMORRHAGIC [None]
  - DEATH [None]
  - DISEASE PROGRESSION [None]
  - LUNG INFILTRATION [None]
  - METASTASES TO LIVER [None]
  - METASTASES TO LUNG [None]
  - METASTASES TO LYMPH NODES [None]
  - METASTASES TO SPINE [None]
  - OTITIS MEDIA [None]
  - SINUSITIS [None]
